FAERS Safety Report 16883792 (Version 1)
Quarter: 2019Q4

REPORT INFORMATION
  Report Type: Spontaneous
  Country: FR (occurrence: FR)
  Receive Date: 20191004
  Receipt Date: 20191004
  Transmission Date: 20200122
  Serious: Yes (Other)
  Sender: FDA-Public Use
  Company Number: FR-LUPIN PHARMACEUTICALS INC.-2019-06354

PATIENT
  Age: 61 Year
  Weight: 66.5 kg

DRUGS (7)
  1. VORICONAZOLE. [Interacting]
     Active Substance: VORICONAZOLE
     Dosage: UNK (TWICE A WEEK) INJECTION
  2. VORICONAZOLE. [Interacting]
     Active Substance: VORICONAZOLE
     Dosage: INJECTION, ON DAY 38
     Route: 042
  3. MILTEFOSINE [Concomitant]
     Active Substance: MILTEFOSINE
     Indication: SCEDOSPORIUM INFECTION
     Dosage: 50 MILLIGRAM, TID
     Route: 065
  4. TERBINAFINE. [Concomitant]
     Active Substance: TERBINAFINE
     Indication: SCEDOSPORIUM INFECTION
     Dosage: UNK
     Route: 065
  5. LANSOPRAZOLE. [Interacting]
     Active Substance: LANSOPRAZOLE
     Dosage: UNK
     Route: 042
  6. VORICONAZOLE. [Suspect]
     Active Substance: VORICONAZOLE
     Indication: SCEDOSPORIUM INFECTION
     Dosage: 200 MILLIGRAM, BID (FOLLOWINGA LOADING DOSE OF 6 MG/KG EVERY 12 HOURS FOR 24 HOURS)
     Route: 048
  7. LANSOPRAZOLE. [Interacting]
     Active Substance: LANSOPRAZOLE
     Indication: PRODUCT USED FOR UNKNOWN INDICATION
     Dosage: 30 MILLIGRAM, QD
     Route: 065

REACTIONS (4)
  - Drug interaction [Unknown]
  - Blindness [Unknown]
  - Drug level below therapeutic [Unknown]
  - Food interaction [Unknown]
